FAERS Safety Report 6866461-3 (Version None)
Quarter: 2010Q3

REPORT INFORMATION
  Report Type: 
  Country: None (occurrence: None)
  Receive Date: 20100722
  Receipt Date: 20100714
  Transmission Date: 20110219
  Serious: Yes (Other)
  Sender: FDA-Public Use
  Company Number: GB-MILLENNIUM PHARMACEUTICALS, INC.-2010-03390

PATIENT

DRUGS (3)
  1. VELCADE [Suspect]
     Indication: MULTIPLE MYELOMA
     Dosage: UNK
     Route: 065
     Dates: start: 20100315, end: 20100621
  2. DEXAMETHASONE [Concomitant]
     Dosage: 20 MG, UNK
     Dates: start: 20100315
  3. ACYCLOVIR [Concomitant]
     Dosage: 20 MG, TID
     Dates: start: 20100315

REACTIONS (1)
  - DRUG INEFFECTIVE [None]
